FAERS Safety Report 12621639 (Version 3)
Quarter: 2016Q3

REPORT INFORMATION
  Report Type: Spontaneous
  Country: US (occurrence: US)
  Receive Date: 20160804
  Receipt Date: 20160921
  Transmission Date: 20161109
  Serious: Yes (Death, Hospitalization, Other)
  Sender: FDA-Public Use
  Company Number: US-009507513-1607USA012364

PATIENT
  Age: 82 Year
  Sex: Male
  Weight: 70.3 kg

DRUGS (1)
  1. KEYTRUDA [Suspect]
     Active Substance: PEMBROLIZUMAB
     Indication: WALDENSTROM^S MACROGLOBULINAEMIA
     Dosage: 200 MG, Q3W, ONLY ONE DOSE
     Route: 042
     Dates: start: 20160603, end: 20160603

REACTIONS (10)
  - Hypoxia [Not Recovered/Not Resolved]
  - Product use issue [Unknown]
  - Pneumonia [Unknown]
  - Anaemia [Unknown]
  - Pleural effusion [Unknown]
  - Hyponatraemia [Recovered/Resolved]
  - Adverse event [Fatal]
  - Nocturia [Unknown]
  - Fatigue [Unknown]
  - Hypoalbuminaemia [Unknown]

NARRATIVE: CASE EVENT DATE: 2016
